FAERS Safety Report 8083564-9 (Version None)
Quarter: 2012Q1

REPORT INFORMATION
  Report Type: 
  Country: None (occurrence: None)
  Receive Date: 20120127
  Receipt Date: 20110127
  Transmission Date: 20120608
  Serious: No
  Sender: FDA-Public Use
  Company Number: US-ABBOTT-11P-163-0700952-00

PATIENT
  Age: 54 Year
  Sex: Female

DRUGS (10)
  1. ZOLOFT [Concomitant]
     Indication: PREMENSTRUAL SYNDROME
  2. TRIMETHOPRIM [Concomitant]
     Indication: PROPHYLAXIS
  3. HUMIRA [Suspect]
     Indication: RHEUMATOID ARTHRITIS
     Dates: start: 20060401
  4. LEVOTHYROXINE SODIUM [Concomitant]
     Indication: THYROID DISORDER
  5. LISINOPRIL [Concomitant]
     Indication: HYPERTENSION
     Dates: start: 20090101
  6. XALATHAN [Concomitant]
     Indication: PRODUCT USED FOR UNKNOWN INDICATION
     Dosage: 1 DROP EACH EYE BEFORE BEDTIME
     Route: 047
  7. TRIMETHOPRIM [Concomitant]
     Indication: URINARY TRACT INFECTION
  8. PENICILLIN [Suspect]
     Indication: PRODUCT USED FOR UNKNOWN INDICATION
  9. UNKNOWN MEDICATIONS [Suspect]
     Indication: PRODUCT USED FOR UNKNOWN INDICATION
  10. ZOLOFT [Concomitant]
     Indication: MENOPAUSE

REACTIONS (8)
  - URINARY TRACT INFECTION [None]
  - SKIN EXFOLIATION [None]
  - HYPERSENSITIVITY [None]
  - HEADACHE [None]
  - ABDOMINAL DISCOMFORT [None]
  - COUGH [None]
  - BLISTER [None]
  - BRONCHITIS [None]
